FAERS Safety Report 7000714-3 (Version None)
Quarter: 2010Q3

REPORT INFORMATION
  Report Type: 
  Country: None (occurrence: None)
  Receive Date: 20100920
  Receipt Date: 20091221
  Transmission Date: 20110219
  Serious: No
  Sender: FDA-Public Use
  Company Number: US-ASTRAZENECA-2009SE33046

PATIENT
  Age: 52 Year
  Sex: Male

DRUGS (6)
  1. SEROQUEL XR [Suspect]
     Route: 048
     Dates: start: 20090701
  2. SEROQUEL XR [Suspect]
     Route: 048
     Dates: start: 20091001
  3. ATIVAN [Concomitant]
  4. BLOOD PRESSURE MEDICATION [Concomitant]
  5. NIASPAN [Concomitant]
  6. PLAVIX [Concomitant]

REACTIONS (5)
  - ANGER [None]
  - GAIT DISTURBANCE [None]
  - INSOMNIA [None]
  - PARKINSONISM [None]
  - SOMNAMBULISM [None]
